FAERS Safety Report 8044597-1 (Version None)
Quarter: 2012Q1

REPORT INFORMATION
  Report Type: 
  Country: None (occurrence: None)
  Receive Date: 20120113
  Receipt Date: 20120113
  Transmission Date: 20120608
  Serious: Yes (Life-Threatening, Hospitalization)
  Sender: FDA-Public Use
  Company Number: None

PATIENT
  Age: 55 Year
  Sex: Female
  Weight: 49.895 kg

DRUGS (2)
  1. TRASTUZUMAB [Suspect]
     Indication: BREAST CANCER METASTATIC
     Dosage: 2MG/KG
     Route: 042
     Dates: start: 20110908, end: 20110923
  2. PACLITAXEL [Concomitant]
     Route: 042

REACTIONS (3)
  - DYSPNOEA [None]
  - FATIGUE [None]
  - TACHYCARDIA [None]
